FAERS Safety Report 10232904 (Version 1)
Quarter: 2014Q2

REPORT INFORMATION
  Report Type: Spontaneous
  Country: US (occurrence: None)
  Receive Date: 20140611
  Receipt Date: 20140611
  Transmission Date: 20141212
  Serious: No
  Sender: FDA-Public Use
  Company Number: None

PATIENT
  Age: 36 Year
  Sex: Female
  Weight: 66.68 kg

DRUGS (2)
  1. COPAXONE 20MG [Suspect]
     Indication: MULTIPLE SCLEROSIS
     Route: 030
  2. ALLEGRA D [Concomitant]

REACTIONS (5)
  - Injection site pain [None]
  - Injection site erythema [None]
  - Injection site inflammation [None]
  - Injection site necrosis [None]
  - Skin lesion [None]
